FAERS Safety Report 15829330 (Version 2)
Quarter: 2020Q1

REPORT INFORMATION
  Report Type: Spontaneous
  Country: US (occurrence: US)
  Receive Date: 20190115
  Receipt Date: 20200122
  Transmission Date: 20200409
  Serious: No
  Sender: FDA-Public Use
  Company Number: US-ALLERGAN-1857002US

PATIENT
  Age: 89 Year
  Sex: Male

DRUGS (6)
  1. HYDRO EYE [Concomitant]
     Dosage: UNK
     Route: 048
  2. SERUM TREATMENTS [Concomitant]
     Dosage: UNK (FOUR TO FIVE TIMES A DAY WHEN AWAKE)
  3. RESTASIS [Suspect]
     Active Substance: CYCLOSPORINE
     Dosage: 1 GTT, BID
     Route: 047
     Dates: start: 201810, end: 201810
  4. LOTEMAX [Concomitant]
     Active Substance: LOTEPREDNOL ETABONATE
     Dosage: UNK
     Route: 047
  5. RESTASIS [Suspect]
     Active Substance: CYCLOSPORINE
     Indication: DRY EYE
     Dosage: 1 GTT, BID
     Route: 047
  6. BLOOD THINNER [Concomitant]
     Active Substance: UNSPECIFIED INGREDIENT
     Dosage: UNK

REACTIONS (4)
  - Incorrect dose administered [Unknown]
  - Eye irritation [Recovered/Resolved]
  - Accidental exposure to product [Unknown]
  - Multiple use of single-use product [Unknown]

NARRATIVE: CASE EVENT DATE: 201810
